FAERS Safety Report 14783523 (Version 1)
Quarter: 2018Q2

REPORT INFORMATION
  Report Type: Spontaneous
  Country: IN (occurrence: IN)
  Receive Date: 20180420
  Receipt Date: 20180420
  Transmission Date: 20180711
  Serious: Yes (Other)
  Sender: FDA-Public Use
  Company Number: IN-JNJFOC-20180424198

PATIENT
  Age: 53 Year
  Sex: Female

DRUGS (11)
  1. RANITIDINE. [Concomitant]
     Active Substance: RANITIDINE
     Route: 065
  2. CYCLOPHOSPHAMIDE. [Suspect]
     Active Substance: CYCLOPHOSPHAMIDE
     Indication: INVASIVE DUCTAL BREAST CARCINOMA
     Route: 041
  3. APREPITANT. [Concomitant]
     Active Substance: APREPITANT
     Route: 048
  4. DEXTROSE 5% [Concomitant]
     Active Substance: DEXTROSE
     Route: 041
  5. DEXTROSE 5% [Concomitant]
     Active Substance: DEXTROSE
     Route: 041
  6. DOXORUBICIN HYDROCHLORIDE. [Suspect]
     Active Substance: DOXORUBICIN HYDROCHLORIDE
     Indication: INVASIVE DUCTAL BREAST CARCINOMA
     Route: 041
  7. ONDANSETRON [Concomitant]
     Active Substance: ONDANSETRON
     Route: 065
  8. AVIL [Concomitant]
     Active Substance: PHENIRAMINE
     Route: 065
  9. DEXAMETHASONE. [Concomitant]
     Active Substance: DEXAMETHASONE
     Route: 042
  10. DEXTROSE 5% [Concomitant]
     Active Substance: DEXTROSE
     Route: 041
  11. PALONOSETRON. [Concomitant]
     Active Substance: PALONOSETRON HYDROCHLORIDE
     Route: 065

REACTIONS (2)
  - Lacrimation increased [Recovered/Resolved]
  - Type IV hypersensitivity reaction [Recovered/Resolved]
